FAERS Safety Report 5966020-0 (Version None)
Quarter: 2008Q4

REPORT INFORMATION
  Report Type: 
  Country: None (occurrence: None)
  Receive Date: 20081119
  Receipt Date: 20080729
  Transmission Date: 20090506
  Serious: No
  Sender: FDA-Public Use
  Company Number: WAES 0808USA00121

PATIENT
  Sex: Female

DRUGS (1)
  1. JANUVIA [Suspect]
     Dosage: PO
     Route: 048
     Dates: start: 20070101, end: 20070101

REACTIONS (7)
  - APHONIA [None]
  - BLOOD GLUCOSE INCREASED [None]
  - CHEST PAIN [None]
  - PALPITATIONS [None]
  - PHARYNGEAL ERYTHEMA [None]
  - PHARYNGEAL INFLAMMATION [None]
  - PULMONARY CONGESTION [None]
